FAERS Safety Report 16271729 (Version 1)
Quarter: 2019Q2

REPORT INFORMATION
  Report Type: Spontaneous
  Country: IT (occurrence: IT)
  Receive Date: 20190506
  Receipt Date: 20190506
  Transmission Date: 20190711
  Serious: Yes (Other)
  Sender: FDA-Public Use
  Company Number: IT-SUN PHARMACEUTICAL INDUSTRIES LTD-2019RR-206958

PATIENT
  Age: 73 Year
  Sex: Female

DRUGS (1)
  1. RILUZOLO SUN 50 MG COMPRESSE RIVESTITE CON FILM [Suspect]
     Active Substance: RILUZOLE
     Indication: AMYOTROPHIC LATERAL SCLEROSIS
     Dosage: 2 DOSAGE FORM, DAILY
     Route: 048
     Dates: start: 20181201, end: 20190115

REACTIONS (2)
  - Rash generalised [Recovered/Resolved]
  - Pruritus generalised [Recovered/Resolved]

NARRATIVE: CASE EVENT DATE: 20181203
